FAERS Safety Report 9217900 (Version 1)
Quarter: 2013Q2

REPORT INFORMATION
  Report Type: Spontaneous
  Country: US (occurrence: US)
  Receive Date: 20130408
  Receipt Date: 20130408
  Transmission Date: 20140414
  Serious: Yes (Other)
  Sender: FDA-Public Use
  Company Number: PHEH2013US007477

PATIENT
  Sex: Female

DRUGS (1)
  1. GLEEVEC [Suspect]
     Dosage: UNK UKN, UNK

REACTIONS (7)
  - Pulmonary embolism [Unknown]
  - Poor peripheral circulation [Unknown]
  - Thrombosis [Unknown]
  - Malaise [Unknown]
  - Peripheral coldness [Unknown]
  - Headache [Unknown]
  - Joint swelling [Unknown]
